FAERS Safety Report 5694140-7 (Version None)
Quarter: 2008Q2

REPORT INFORMATION
  Report Type: 
  Country: None (occurrence: None)
  Receive Date: 20080402
  Receipt Date: 20080325
  Transmission Date: 20081010
  Serious: Yes (Hospitalization)
  Sender: FDA-Public Use
  Company Number: S08-USA-01207-01

PATIENT
  Age: 31 Year
  Sex: Male

DRUGS (3)
  1. LEXAPRO [Suspect]
     Indication: DEPRESSION
     Dates: start: 20070701, end: 20071101
  2. TOPAMAX [Concomitant]
  3. KLONOPIN [Concomitant]

REACTIONS (2)
  - PARANOIA [None]
  - PSYCHOTIC DISORDER [None]
